FAERS Safety Report 9492906 (Version 2)
Quarter: 2013Q3

REPORT INFORMATION
  Report Type: Spontaneous
  Country: CA (occurrence: CA)
  Receive Date: 20130902
  Receipt Date: 20130902
  Transmission Date: 20140515
  Serious: Yes (Other)
  Sender: FDA-Public Use
  Company Number: CA-AMGEN-CANSP2013047594

PATIENT
  Age: 70 Year
  Sex: Female
  Weight: 57 kg

DRUGS (34)
  1. ENBREL [Suspect]
     Indication: RHEUMATOID ARTHRITIS
     Dosage: 50 MG/ML, QWK
     Route: 058
     Dates: start: 20110602
  2. PROLIA [Suspect]
     Indication: PRODUCT USED FOR UNKNOWN INDICATION
     Dosage: UNK
     Route: 065
     Dates: start: 201103
  3. PROLIA [Suspect]
     Dosage: 60 MG/ML, 1 SYRINGE DIE Q6MO
     Route: 065
     Dates: start: 20120202
  4. PROLIA [Suspect]
     Dosage: 60 MG/ML, 1 SYRINGE DIE 1 SYRINGE
     Route: 065
     Dates: start: 20120323
  5. PROLIA [Suspect]
     Dosage: 60 MG/ML, 1 SYRINGE DIE Q6MO
     Route: 065
     Dates: start: 20121011
  6. PROLIA [Suspect]
     Dosage: 60 MG/ML, 1 SYRINGE DIE Q6MO
     Route: 065
     Dates: start: 20130319
  7. PROLIA [Suspect]
     Dosage: 60 MG/ML, 1 SYRINGE DIE Q6MO
     Route: 065
     Dates: start: 20130729
  8. NEORAL [Concomitant]
     Dosage: 50 MG, BID 90 TABLETS+ 25 MG DIE IN MORNING
     Route: 048
     Dates: start: 20091028
  9. NEORAL [Concomitant]
     Dosage: 50 MG, BID 90 TABLETS+ 25 MG DIE IN MORNING
     Route: 048
     Dates: start: 20100531
  10. NEORAL [Concomitant]
     Dosage: 50 MG, BID 90 TABLETS+ 25 MG DIE IN MORNING
     Route: 048
     Dates: start: 20101216
  11. METHOTREXATE [Concomitant]
     Dosage: 25 MG/ML, Q1 WEEK 4XWEEKS
     Dates: start: 20100209
  12. METHOTREXATE [Concomitant]
     Dosage: 25 MG/ML, Q1 WEEK 4XWEEKS
     Dates: start: 20100531
  13. METHOTREXATE [Concomitant]
     Dosage: 25 MG/ML, Q1 WEEK 4XWEEKS
     Dates: start: 20100921
  14. METHOTREXATE [Concomitant]
     Dosage: 25 MG/ML, Q1 WEEK 4XWEEKS
     Dates: start: 20110323
  15. METHOTREXATE [Concomitant]
     Dosage: 25 MG/ML, Q1 WEEK 4XWEEKS
     Dates: start: 20110830
  16. METHOTREXATE [Concomitant]
     Dosage: 25 MG/ML, Q1 WEEK 4XWEEKS
     Dates: start: 20120202
  17. METHOTREXATE [Concomitant]
     Dosage: 25 MG/ML, Q1 WEEK 4XWEEKS
     Dates: start: 20120213
  18. METHOTREXATE [Concomitant]
     Dosage: 25 MG/ML, Q1 WEEK 4XWEEKS
     Dates: start: 20120726
  19. METHOTREXATE [Concomitant]
     Dosage: 25 MG/ML, Q1 WEEK 4XWEEKS
     Dates: start: 20121011
  20. METHOTREXATE [Concomitant]
     Dosage: 25 MG/ML, Q1 WEEK 4XWEEKS
     Dates: start: 20130429
  21. PANTOLOC                           /01263204/ [Concomitant]
     Dosage: 40 MG, 1 TABLET DIE AM 30 TABLETS
     Dates: start: 20100531
  22. PANTOLOC                           /01263204/ [Concomitant]
     Dosage: 40 MG, 1 TABLET DIE AM 30 TABLETS
     Dates: start: 20101216
  23. PANTOLOC                           /01263204/ [Concomitant]
     Dosage: 40 MG, 1 TABLET DIE AM 30 TABLETS
     Dates: start: 20111025
  24. LEUCOVORIN                         /00566701/ [Concomitant]
     Dosage: 5 MG, UNK 1 TABLET Q1 WEEK 4 TABLETS
     Dates: start: 20100531
  25. LEUCOVORIN                         /00566701/ [Concomitant]
     Dosage: 5 MG, UNK 1 TABLET Q1 WEEK 4 TABLETS
     Dates: start: 20101216
  26. LEUCOVORIN                         /00566701/ [Concomitant]
     Dosage: 5 MG, UNK 1 TABLET Q1 WEEK 4 TABLETS
     Dates: start: 20111025
  27. EURO D [Concomitant]
     Dosage: 10000 UI 1 TABLET Q1 WEEK 4 TABLETS
     Dates: start: 20101216
  28. EURO D [Concomitant]
     Dosage: 10000 UI 1 TABLET Q1 WEEK 4 TABLETS
     Dates: start: 20111025
  29. EURO D [Concomitant]
     Dosage: 10000 UI 1 TABLET Q1 WEEK 4 TABLETS
     Dates: start: 20121011
  30. ISONIAZID [Concomitant]
     Dosage: 300 MUG, 1 TABLET DIE 1 MONTH
     Dates: start: 20110830
  31. BIOTIN [Concomitant]
     Dosage: 300 MUG, 1 TABLET DIE 1 MONTH
     Dates: start: 20110830
  32. BIOTIN [Concomitant]
     Dosage: 300 MUG, 1 TABLET DIE 1 MONTH
     Dates: start: 20111025
  33. PREDNISONE [Concomitant]
     Dosage: 5 MG, 5 TABLETS PO DIE FOR 3 DAYS 4 TABLETS PO DIE FOR 3 DAYS 3 TABLETS FOR 3 DAYS 2 TABLET PO DIE
  34. VITAMIN B6 [Concomitant]
     Dosage: 25 MG, 1 TABLET DIE 30 TABLETS
     Dates: start: 20120611

REACTIONS (7)
  - Bone infarction [Not Recovered/Not Resolved]
  - Bone density decreased [Unknown]
  - Pain [Unknown]
  - Bone marrow oedema [Unknown]
  - Arthropathy [Unknown]
  - Adverse event [Unknown]
  - Stress fracture [Unknown]
